FAERS Safety Report 25814922 (Version 1)
Quarter: 2025Q3

REPORT INFORMATION
  Report Type: Spontaneous
  Country: JP (occurrence: JP)
  Receive Date: 20250918
  Receipt Date: 20250918
  Transmission Date: 20251020
  Serious: Yes (Death, Hospitalization)
  Sender: ROCHE
  Company Number: JP-CHUGAI-2025029141

PATIENT
  Age: 53 Year
  Sex: Female
  Weight: 42 kg

DRUGS (3)
  1. AVASTIN [Suspect]
     Active Substance: BEVACIZUMAB
     Indication: Cervix carcinoma
     Route: 042
  2. PACLITAXEL [Concomitant]
     Active Substance: PACLITAXEL
     Indication: Cervix carcinoma
     Route: 042
  3. CARBOPLATIN [Concomitant]
     Active Substance: CARBOPLATIN
     Indication: Cervix carcinoma
     Route: 042

REACTIONS (5)
  - General physical health deterioration [Fatal]
  - Peritonitis [Unknown]
  - Intestinal perforation [Unknown]
  - Escherichia bacteraemia [Recovering/Resolving]
  - Anal fistula [Unknown]
